FAERS Safety Report 8171099-4 (Version None)
Quarter: 2012Q1

REPORT INFORMATION
  Report Type: 
  Country: None (occurrence: None)
  Receive Date: 20120228
  Receipt Date: 20120221
  Transmission Date: 20120608
  Serious: Yes (Other)
  Sender: FDA-Public Use
  Company Number: PHHY2012NO014882

PATIENT
  Sex: Male

DRUGS (2)
  1. GILENYA [Suspect]
     Dosage: UNK UKN, UNK
     Dates: start: 20111001
  2. GILENYA [Suspect]
     Dosage: UNK UKN, UNK
     Dates: start: 20111101

REACTIONS (4)
  - PYLORIC STENOSIS [None]
  - VOMITING [None]
  - NAUSEA [None]
  - IMPAIRED GASTRIC EMPTYING [None]
